FAERS Safety Report 15155829 (Version 1)
Quarter: 2018Q3

REPORT INFORMATION
  Report Type: Spontaneous
  Country: DE (occurrence: DE)
  Receive Date: 20180717
  Receipt Date: 20180717
  Transmission Date: 20181010
  Serious: Yes (Hospitalization)
  Sender: FDA-Public Use
  Company Number: DE-US WORLDMEDS, LLC-STA_00018206

PATIENT
  Age: 73 Year
  Sex: Male
  Weight: 85 kg

DRUGS (11)
  1. MADOPAR LT [Concomitant]
     Active Substance: BENSERAZIDE HYDROCHLORIDE\LEVODOPA
  2. SEROQUEL [Concomitant]
     Active Substance: QUETIAPINE FUMARATE
  3. MARCUMAR 3MG [Concomitant]
     Route: 048
  4. ROPINIROLE. [Concomitant]
     Active Substance: ROPINIROLE
     Route: 048
  5. L?THYROXIN 50 [Concomitant]
     Active Substance: LEVOTHYROXINE SODIUM
     Route: 048
  6. LYRICA [Concomitant]
     Active Substance: PREGABALIN
  7. DULOXETINE. [Concomitant]
     Active Substance: DULOXETINE
     Route: 048
  8. MADOPAR T [Concomitant]
     Active Substance: BENSERAZIDE HYDROCHLORIDE\LEVODOPA
  9. APOMORPHINE HYDROCHLORIDE [Suspect]
     Active Substance: APOMORPHINE HYDROCHLORIDE
     Indication: PARKINSON^S DISEASE
     Dosage: 276 MG DAILY, NO BOLUS
     Route: 058
     Dates: start: 201512
  10. METAMIZOLE [Concomitant]
     Active Substance: METAMIZOLE
     Route: 048
  11. SERTRALIN 50MG [Concomitant]

REACTIONS (1)
  - Empyema [Recovered/Resolved]

NARRATIVE: CASE EVENT DATE: 20160617
